FAERS Safety Report 9093483 (Version 3)
Quarter: 2014Q1

REPORT INFORMATION
  Report Type: Spontaneous
  Country: US (occurrence: US)
  Receive Date: 20130218
  Receipt Date: 20140307
  Transmission Date: 20141002
  Serious: Yes (Hospitalization, Other)
  Sender: FDA-Public Use
  Company Number: US-009507513-1302USA007777

PATIENT
  Sex: Female
  Weight: 105.67 kg

DRUGS (7)
  1. FOSAMAX PLUS D [Suspect]
     Indication: OSTEOPENIA
     Dosage: 70 MG/2800, UNK
     Route: 048
     Dates: start: 200610, end: 200807
  2. ALENDRONATE SODIUM [Suspect]
     Indication: OSTEOPENIA
     Dosage: 70 MG, UNK
     Route: 048
     Dates: start: 200808, end: 201102
  3. CORTICOSTEROIDS (UNSPECIFIED) [Concomitant]
     Dosage: UNK
     Dates: start: 200408
  4. HORMONES (UNSPECIFIED) [Concomitant]
     Dosage: UNK
     Dates: start: 1995, end: 2006
  5. CALCIUM (UNSPECIFIED) [Concomitant]
     Indication: OSTEOPENIA
  6. VITAMIN D (UNSPECIFIED) [Concomitant]
     Indication: OSTEOPENIA
  7. CALCIUM (UNSPECIFIED) (+) VITAMIN D (UNSPECIFIED) [Concomitant]
     Dosage: UNK
     Dates: start: 2006

REACTIONS (17)
  - Femur fracture [Recovering/Resolving]
  - Intramedullary rod insertion [Unknown]
  - Open reduction of fracture [Unknown]
  - Low turnover osteopathy [Unknown]
  - Hyperlipidaemia [Unknown]
  - Osteoporosis [Unknown]
  - Polymyalgia rheumatica [Unknown]
  - Osteoarthritis [Unknown]
  - Haemorrhagic anaemia [Unknown]
  - Anaemia [Not Recovered/Not Resolved]
  - Wrist fracture [Unknown]
  - Gastritis [Unknown]
  - Gastric bypass [Unknown]
  - Sleep apnoea syndrome [Unknown]
  - Cardiac murmur [Unknown]
  - Increased insulin requirement [Unknown]
  - Weight decreased [Unknown]
